FAERS Safety Report 19065064 (Version 1)
Quarter: 2021Q1

REPORT INFORMATION
  Report Type: Other
  Country: JP (occurrence: JP)
  Receive Date: 20210327
  Receipt Date: 20210327
  Transmission Date: 20210420
  Serious: Yes (Other)
  Sender: FDA-Public Use
  Company Number: JP-ROCHE-2794416

PATIENT

DRUGS (5)
  1. 5?FU [Suspect]
     Active Substance: FLUOROURACIL
     Indication: COLORECTAL CANCER METASTATIC
     Route: 040
  2. 5?FU [Suspect]
     Active Substance: FLUOROURACIL
     Route: 040
  3. BEVACIZUMAB. [Suspect]
     Active Substance: BEVACIZUMAB
     Indication: COLORECTAL CANCER METASTATIC
     Route: 065
  4. IRINOTECAN [Suspect]
     Active Substance: IRINOTECAN
     Indication: COLORECTAL CANCER METASTATIC
     Dosage: 150?180 MG/M2
     Route: 065
  5. L?LEUCOVORIN [Suspect]
     Active Substance: LEUCOVORIN
     Indication: COLORECTAL CANCER METASTATIC
     Route: 065

REACTIONS (10)
  - Febrile neutropenia [Unknown]
  - Diarrhoea [Unknown]
  - Infection [Unknown]
  - Neutropenia [Unknown]
  - Hypertension [Unknown]
  - Fatigue [Unknown]
  - Proteinuria [Unknown]
  - Oedema [Unknown]
  - Embolism [Unknown]
  - Mucosal inflammation [Unknown]
